FAERS Safety Report 6152106-7 (Version None)
Quarter: 2009Q2

REPORT INFORMATION
  Report Type: 
  Country: None (occurrence: None)
  Receive Date: 20090408
  Receipt Date: 20090327
  Transmission Date: 20091009
  Serious: Yes (Disabling, Other)
  Sender: FDA-Public Use
  Company Number: 2009AL001886

PATIENT
  Age: 56 Year
  Sex: Male

DRUGS (8)
  1. METFORMIN HYDROCHLORIDE [Suspect]
     Indication: DIABETES MELLITUS
     Dosage: 1.5 MG; QD
     Dates: start: 19990101
  2. ATORVASTATIN [Concomitant]
  3. PIOGLITAZONE [Concomitant]
  4. PERINDOPRIL [Concomitant]
  5. ATENOLOL [Concomitant]
  6. CANDESARTAN [Concomitant]
  7. PRAVASTATIN [Concomitant]
  8. SIMVASTATIN [Concomitant]

REACTIONS (3)
  - ARTHROPATHY [None]
  - MUSCULAR WEAKNESS [None]
  - MYALGIA [None]
